FAERS Safety Report 9703704 (Version 2)
Quarter: 2013Q4

REPORT INFORMATION
  Report Type: Report from Study
  Country: CA (occurrence: CA)
  Receive Date: 20131122
  Receipt Date: 20131230
  Transmission Date: 20140711
  Serious: Yes (Hospitalization)
  Sender: FDA-Public Use
  Company Number: CA-JNJFOC-20131111206

PATIENT
  Age: 49 Year
  Sex: Male
  Weight: 81 kg

DRUGS (12)
  1. REMICADE [Suspect]
     Indication: ANKYLOSING SPONDYLITIS
     Dosage: LAST INFLIXIMAB INFUSION
     Route: 042
     Dates: start: 20130910
  2. REMICADE [Suspect]
     Indication: ANKYLOSING SPONDYLITIS
     Route: 042
     Dates: start: 20091019
  3. IBUPROFEN [Concomitant]
     Route: 065
  4. METOPROLOL [Concomitant]
     Route: 065
  5. ACETYLSALICYLIC ACID [Concomitant]
     Route: 065
  6. METFORMIN [Concomitant]
     Route: 065
  7. CRESTOR [Concomitant]
     Route: 065
  8. ISONIAZID [Concomitant]
     Route: 065
  9. RIFAMPIN [Concomitant]
     Route: 065
  10. ADALAT [Concomitant]
     Route: 065
  11. PREVACID [Concomitant]
     Route: 065
  12. VITAMIN B [Concomitant]
     Route: 065

REACTIONS (1)
  - Cardiac disorder [Recovering/Resolving]
